FAERS Safety Report 5132810-X (Version None)
Quarter: 2006Q4

REPORT INFORMATION
  Report Type: 
  Country: None (occurrence: None)
  Receive Date: 20061017
  Receipt Date: 20061012
  Transmission Date: 20070319
  Serious: Yes (Death)
  Sender: FDA-Public Use
  Company Number: GBWYE210512OCT06

PATIENT
  Sex: Male

DRUGS (2)
  1. TYGACIL [Suspect]
     Dosage: ^ VERY SHORT TIME ^
  2. MEROPENEM (MEROPENEM) [Concomitant]

REACTIONS (1)
  - DEATH [None]
